FAERS Safety Report 6530510-2 (Version None)
Quarter: 2010Q1

REPORT INFORMATION
  Report Type: 
  Country: None (occurrence: None)
  Receive Date: 20100106
  Receipt Date: 20100106
  Transmission Date: 20100710
  Serious: Yes (Hospitalization)
  Sender: FDA-Public Use
  Company Number: None

PATIENT
  Sex: Female
  Weight: 51 kg

DRUGS (1)
  1. SOLIRIS [Suspect]
     Indication: PROPHYLAXIS AGAINST TRANSPLANT REJECTION
     Dosage: 1200 MG FIVE IV 600 MG THIRTEEN IV
     Route: 042

REACTIONS (3)
  - CULTURE URINE POSITIVE [None]
  - ENTEROBACTER INFECTION [None]
  - URINARY TRACT INFECTION [None]
